FAERS Safety Report 11340065 (Version 1)
Quarter: 2015Q3

REPORT INFORMATION
  Report Type: Spontaneous
  Country: US (occurrence: None)
  Receive Date: 20150803
  Receipt Date: 20150803
  Transmission Date: 20151125
  Serious: Yes (Hospitalization)
  Sender: FDA-Public Use
  Company Number: None

PATIENT
  Age: 53 Year
  Sex: Male
  Weight: 139 kg

DRUGS (2)
  1. DAUNORUBICIN [Suspect]
     Active Substance: DAUNORUBICIN
     Dates: end: 20101009
  2. CYTARABINE. [Suspect]
     Active Substance: CYTARABINE
     Dates: end: 20101014

REACTIONS (8)
  - Pneumonia [None]
  - Cholelithiasis [None]
  - Blood bilirubin increased [None]
  - Hypotension [None]
  - Blood disorder [None]
  - Blood creatinine increased [None]
  - Haemoptysis [None]
  - Infection [None]

NARRATIVE: CASE EVENT DATE: 20101007
